FAERS Safety Report 21178800 (Version 1)
Quarter: 2022Q3

REPORT INFORMATION
  Report Type: Report from Study
  Country: US (occurrence: US)
  Receive Date: 20220805
  Receipt Date: 20220805
  Transmission Date: 20221027
  Serious: Yes (Other)
  Sender: FDA-Public Use
  Company Number: US-JAZZ-2022-US-021956

PATIENT
  Age: 58 Year
  Sex: Male

DRUGS (14)
  1. XYREM [Suspect]
     Active Substance: SODIUM OXYBATE
     Indication: Narcolepsy
  2. SYNTHROID [Concomitant]
     Active Substance: LEVOTHYROXINE SODIUM
     Dosage: 0000
     Dates: start: 20151002
  3. MIRAPEX [Concomitant]
     Active Substance: PRAMIPEXOLE DIHYDROCHLORIDE
     Dosage: 0000
     Dates: start: 20151002
  4. LIPITOR [Concomitant]
     Active Substance: ATORVASTATIN CALCIUM
     Dosage: 0000
     Dates: start: 20151002
  5. LOTREL G [Concomitant]
     Dosage: 0000
     Dates: start: 20151002
  6. NUVIGIL [Concomitant]
     Active Substance: ARMODAFINIL
     Dosage: 0000
     Dates: start: 20151002
  7. WELLBUTRIN XL [Concomitant]
     Active Substance: BUPROPION HYDROCHLORIDE
     Dosage: 0000
     Dates: start: 20151002
  8. VITAMIN D3 [Concomitant]
     Active Substance: CHOLECALCIFEROL
     Dosage: 5,000, UNITS SOFTGEL
     Dates: start: 20151014
  9. TRINTELLIX [Concomitant]
     Active Substance: VORTIOXETINE HYDROBROMIDE
     Dosage: 0010
     Dates: start: 20170427
  10. AMANTADINE [Concomitant]
     Active Substance: AMANTADINE
     Dosage: 0010
     Dates: start: 20170303
  11. TESTOSTERONE CYPIONATE [Concomitant]
     Active Substance: TESTOSTERONE CYPIONATE
     Dosage: 200 MG/ML
     Dates: start: 20180322
  12. LAMOTRIGINE [Concomitant]
     Active Substance: LAMOTRIGINE
     Dosage: 0000
     Dates: start: 20210506
  13. METFORMIN HYDROCHLORIDE [Concomitant]
     Active Substance: METFORMIN HYDROCHLORIDE
     Dosage: 0000
     Dates: start: 20210303
  14. NAPROXEN [Concomitant]
     Active Substance: NAPROXEN
     Dosage: 0000
     Dates: start: 20210304

REACTIONS (14)
  - Hypothyroidism [Unknown]
  - Contusion [Unknown]
  - Snoring [Unknown]
  - Restless legs syndrome [Unknown]
  - Obesity [Unknown]
  - Feeling abnormal [Unknown]
  - Disorientation [Unknown]
  - Thinking abnormal [Unknown]
  - Depression [Unknown]
  - Fall [Unknown]
  - Benign prostatic hyperplasia [Unknown]
  - Drug ineffective [Unknown]
  - Treatment noncompliance [Unknown]
  - Product administration interrupted [Unknown]

NARRATIVE: CASE EVENT DATE: 20151224
